FAERS Safety Report 10226611 (Version 2)
Quarter: 2014Q2

REPORT INFORMATION
  Report Type: Spontaneous
  Country: US (occurrence: US)
  Receive Date: 20140609
  Receipt Date: 20140618
  Transmission Date: 20141212
  Serious: Yes (Hospitalization, Other)
  Sender: FDA-Public Use
  Company Number: US-RB-068352-14

PATIENT
  Sex: Male

DRUGS (4)
  1. SUBOXONE TABLET [Suspect]
     Indication: DRUG DEPENDENCE
     Dosage: CUTTING THE TABLET TO ACHIEVE DOSING
     Route: 060
  2. SUBOXONE FILM [Suspect]
     Indication: DRUG DEPENDENCE
     Dosage: SUBOXONE FILM; CUTTING
     Route: 060
     Dates: end: 201301
  3. SUBOXONE FILM [Suspect]
     Dosage: SUBOXONE FILM; CUTTING
     Route: 060
     Dates: start: 201301
  4. XANAX [Concomitant]
     Indication: ANXIETY
     Dosage: FURTHER DOSING DETAILS UNKNOWN
     Route: 048
     Dates: start: 201301

REACTIONS (8)
  - Substance abuse [Recovered/Resolved]
  - Wrong technique in drug usage process [Recovered/Resolved]
  - Headache [Recovered/Resolved]
  - Hypertension [Not Recovered/Not Resolved]
  - Tooth disorder [Recovered/Resolved]
  - Cerebrovascular accident [Recovered/Resolved with Sequelae]
  - Memory impairment [Not Recovered/Not Resolved]
  - Panic attack [Recovered/Resolved]
